FAERS Safety Report 25341020 (Version 1)
Quarter: 2025Q2

REPORT INFORMATION
  Report Type: Spontaneous
  Country: CN (occurrence: CN)
  Receive Date: 20250521
  Receipt Date: 20250521
  Transmission Date: 20250716
  Serious: Yes (Hospitalization)
  Sender: ABBVIE
  Company Number: CN-ABBVIE-6287342

PATIENT
  Age: 76 Year
  Sex: Male
  Weight: 67 kg

DRUGS (4)
  1. VENCLEXTA [Suspect]
     Active Substance: VENETOCLAX
     Indication: Targeted cancer therapy
     Dosage: 400 MILLIGRAM, DAY 3 TO 28
     Route: 048
     Dates: start: 20250510, end: 20250510
  2. VENCLEXTA [Suspect]
     Active Substance: VENETOCLAX
     Indication: Targeted cancer therapy
     Dosage: 100 MILLIGRAM, DAY 1
     Route: 048
     Dates: start: 20250508, end: 20250508
  3. VENCLEXTA [Suspect]
     Active Substance: VENETOCLAX
     Indication: Targeted cancer therapy
     Dosage: 200 MILLIGRAM, DAY 2
     Route: 048
     Dates: start: 20250509, end: 20250509
  4. AZACITIDINE [Suspect]
     Active Substance: AZACITIDINE
     Indication: Chemotherapy
     Dosage: 100 MILLIGRAM, DAY 1 TO DAY 7
     Route: 058
     Dates: start: 20250508, end: 20250514

REACTIONS (1)
  - Myelosuppression [Recovering/Resolving]

NARRATIVE: CASE EVENT DATE: 20250512
